FAERS Safety Report 5127434-4 (Version None)
Quarter: 2006Q4

REPORT INFORMATION
  Report Type: 
  Country: None (occurrence: None)
  Receive Date: 20061010
  Receipt Date: 20060925
  Transmission Date: 20070319
  Serious: Yes (Other)
  Sender: FDA-Public Use
  Company Number: 2006115807

PATIENT
  Age: 71 Year
  Sex: Female

DRUGS (7)
  1. SOBELIN (CLINDAMYCIN HYDROCHLORIDE) [Suspect]
     Indication: TOOTH ABSCESS
     Dosage: 900 MG (300 MG, FREQUENCY: TID), ORAL
     Route: 048
     Dates: end: 20060901
  2. ISOSORBIDE DINITRATE [Concomitant]
  3. BENALAPRIL (ENALAPRIL) [Concomitant]
  4. METOHEXAL (METOPROLOL TARTRATE) [Concomitant]
  5. INEGY (EZETIMIBE, SIMVASTATIN) [Concomitant]
  6. DIPIPERON (PIPAMPERONE) [Concomitant]
  7. IBUPROFEN [Concomitant]

REACTIONS (5)
  - BLOOD PRESSURE FLUCTUATION [None]
  - DIZZINESS [None]
  - NAUSEA [None]
  - OSCILLOPSIA [None]
  - PALPITATIONS [None]
